FAERS Safety Report 7305450-1 (Version None)
Quarter: 2011Q1

REPORT INFORMATION
  Report Type: 
  Country: None (occurrence: None)
  Receive Date: 20110222
  Receipt Date: 20110210
  Transmission Date: 20110831
  Serious: Yes (Other)
  Sender: FDA-Public Use
  Company Number: PHHY2011MX05126

PATIENT
  Sex: Female

DRUGS (6)
  1. LERCANIDIPINE [Concomitant]
  2. EXELON [Suspect]
     Indication: DEMENTIA ALZHEIMER'S TYPE
     Dosage: 4.6 MG DAILY
     Route: 062
     Dates: start: 20100915
  3. EXELON [Suspect]
     Indication: SENILE DEMENTIA
     Dosage: 9.5 MG, UNK
     Route: 062
     Dates: start: 20101015
  4. ENALAPRIL [Concomitant]
  5. EXELON [Suspect]
     Dosage: 4.6 MG, UNK
     Route: 062
     Dates: start: 20101115, end: 20101201
  6. AKATINOL [Concomitant]

REACTIONS (5)
  - RASH PRURITIC [None]
  - CYANOSIS [None]
  - SKIN EXFOLIATION [None]
  - URTICARIA [None]
  - CONTUSION [None]
